FAERS Safety Report 22385644 (Version 1)
Quarter: 2023Q2

REPORT INFORMATION
  Report Type: Other
  Country: GB (occurrence: None)
  Receive Date: 20230530
  Receipt Date: 20230530
  Transmission Date: 20230722
  Serious: Yes (Other)
  Sender: FDA-Public Use
  Company Number: GB-ROCHE-3355250

PATIENT

DRUGS (11)
  1. BEVACIZUMAB [Suspect]
     Active Substance: BEVACIZUMAB
     Indication: COVID-19
     Route: 065
  2. TOCILIZUMAB [Suspect]
     Active Substance: TOCILIZUMAB
     Indication: COVID-19
     Route: 065
  3. LEFLUNOMIDE [Suspect]
     Active Substance: LEFLUNOMIDE
     Indication: COVID-19
     Dosage: LOADING DOSE
     Route: 048
  4. LEFLUNOMIDE [Suspect]
     Active Substance: LEFLUNOMIDE
     Dosage: MAINTENANCE DOSE
     Route: 048
  5. DEXAMETHASONE [Suspect]
     Active Substance: DEXAMETHASONE
     Indication: COVID-19
     Route: 065
  6. DEXAMETHASONE [Suspect]
     Active Substance: DEXAMETHASONE
     Dosage: FOR 7-10 DAYS
     Route: 065
  7. METHYLPREDNISOLONE [Suspect]
     Active Substance: METHYLPREDNISOLONE
     Indication: COVID-19
     Route: 065
  8. METHYLPREDNISOLONE [Suspect]
     Active Substance: METHYLPREDNISOLONE
     Route: 065
  9. INTERFERON ALFA NOS [Suspect]
     Active Substance: INTERFERON ALFA-2A OR INTERFERON ALFA-2B
     Indication: COVID-19
     Route: 065
  10. INTERFERON BETA [Suspect]
     Active Substance: INTERFERON BETA
     Indication: COVID-19
     Route: 065
  11. HYDROXYCHLOROQUINE [Suspect]
     Active Substance: HYDROXYCHLOROQUINE
     Indication: COVID-19
     Route: 065

REACTIONS (79)
  - Disseminated intravascular coagulation [Unknown]
  - Acute coronary syndrome [Unknown]
  - Sepsis [Unknown]
  - Acute respiratory distress syndrome [Unknown]
  - Haemorrhage intracranial [Unknown]
  - Endocarditis [Unknown]
  - Intervertebral discitis [Unknown]
  - Lung neoplasm malignant [Unknown]
  - Acute kidney injury [Unknown]
  - Respiratory failure [Unknown]
  - Pulmonary embolism [Unknown]
  - Hemiparesis [Unknown]
  - Lymphadenopathy [Unknown]
  - Neutropenia [Unknown]
  - Gastric haemorrhage [Unknown]
  - Hilar lymphadenopathy [Unknown]
  - Thrombocytopenia [Unknown]
  - Splenomegaly [Unknown]
  - Aortic valve disease [Unknown]
  - Atrial fibrillation [Unknown]
  - Chest pain [Unknown]
  - Left ventricular dysfunction [Unknown]
  - Conduction disorder [Unknown]
  - Sinus tachycardia [Unknown]
  - Adrenal adenoma [Unknown]
  - Dry eye [Unknown]
  - Lethargy [Unknown]
  - Diarrhoea [Unknown]
  - Gastritis [Unknown]
  - Hiatus hernia [Unknown]
  - Rectal haemorrhage [Unknown]
  - Stomatitis [Unknown]
  - Dyspepsia [Unknown]
  - Vomiting [Unknown]
  - Hepatic function abnormal [Unknown]
  - Cholelithiasis [Unknown]
  - Granulomatous liver disease [Unknown]
  - Hepatic steatosis [Unknown]
  - Activated partial thromboplastin time prolonged [Unknown]
  - Blood alkaline phosphatase increased [Unknown]
  - Blood bilirubin increased [Unknown]
  - Interleukin level increased [Unknown]
  - Leukocytosis [Unknown]
  - Alanine aminotransferase increased [Unknown]
  - Aspartate aminotransferase increased [Unknown]
  - Aspartate aminotransferase increased [Unknown]
  - Hyperglycaemia [Unknown]
  - Hyperkalaemia [Unknown]
  - Hyponatraemia [Unknown]
  - Hypomagnesaemia [Unknown]
  - VIth nerve paralysis [Unknown]
  - Aphasia [Unknown]
  - Cognitive disorder [Unknown]
  - Cerebellar calcification [Unknown]
  - Muscular weakness [Unknown]
  - Dysphagia [Unknown]
  - Headache [Unknown]
  - Anxiety [Unknown]
  - Delirium [Unknown]
  - Haematuria [Unknown]
  - Micturition urgency [Unknown]
  - Wheezing [Unknown]
  - Atelectasis [Unknown]
  - Hypoxia [Unknown]
  - Chronic obstructive pulmonary disease [Unknown]
  - Dysphonia [Unknown]
  - Dyspnoea [Unknown]
  - Pneumonitis [Unknown]
  - Epistaxis [Unknown]
  - Haemoptysis [Unknown]
  - Pneumothorax [Unknown]
  - Subcutaneous emphysema [Unknown]
  - Endometrial thickening [Unknown]
  - Aortic valve replacement [Unknown]
  - Implantable cardiac monitor insertion [Unknown]
  - Aortic aneurysm [Unknown]
  - Deep vein thrombosis [Unknown]
  - Angiopathy [Unknown]
  - Hypertension [Unknown]
